FAERS Safety Report 11811371 (Version 2)
Quarter: 2015Q4

REPORT INFORMATION
  Report Type: Spontaneous
  Country: BR (occurrence: BR)
  Receive Date: 20151208
  Receipt Date: 20151223
  Transmission Date: 20160305
  Serious: Yes (Hospitalization)
  Sender: FDA-Public Use
  Company Number: BR-UCBSA-2015029933

PATIENT
  Age: 59 Year
  Sex: Female
  Weight: 71 kg

DRUGS (6)
  1. PHOSPHATE [Concomitant]
     Active Substance: UNSPECIFIED INGREDIENT
     Indication: PAIN
     Dosage: 20 MG, ONCE DAILY (QD)
     Dates: start: 2007
  2. CIMZIA [Suspect]
     Active Substance: CERTOLIZUMAB PEGOL
     Dosage: UNK
     Dates: start: 2015, end: 2015
  3. CODEINE [Concomitant]
     Active Substance: CODEINE
     Indication: PAIN
     Dosage: 20 MG, ONCE DAILY (QD)
     Dates: start: 2007
  4. CIMZIA [Suspect]
     Active Substance: CERTOLIZUMAB PEGOL
     Indication: PRODUCT USED FOR UNKNOWN INDICATION
     Dosage: 200 MG, EV 15 DAYS
     Dates: end: 20150720
  5. CORTISONE [Concomitant]
     Active Substance: CORTISONE\HYDROCORTISONE
     Indication: PAIN
     Dosage: 2.5 MG, ONCE DAILY (QD)
     Dates: start: 2007
  6. FAMOTIDINE. [Concomitant]
     Active Substance: FAMOTIDINE
     Indication: PAIN
     Dosage: 40 MG, ONCE DAILY (QD)
     Dates: start: 2007

REACTIONS (4)
  - Urinary tract infection [Recovered/Resolved]
  - Drug dose omission [Unknown]
  - Arthralgia [Unknown]
  - Gait disturbance [Not Recovered/Not Resolved]

NARRATIVE: CASE EVENT DATE: 2015
